FAERS Safety Report 8906276 (Version 1)
Quarter: 2012Q4

REPORT INFORMATION
  Report Type: Spontaneous
  Country: US (occurrence: None)
  Receive Date: 20121112
  Receipt Date: 20121112
  Transmission Date: 20130627
  Serious: Yes (Hospitalization, Disabling)
  Sender: FDA-Public Use
  Company Number: None

PATIENT
  Age: 40 Year
  Sex: Female
  Weight: 61.24 kg

DRUGS (1)
  1. VYVANSE [Suspect]
     Indication: ADHD
     Dates: start: 20110601, end: 20120831

REACTIONS (1)
  - Cerebrovascular accident [None]
